FAERS Safety Report 22638951 (Version 1)
Quarter: 2023Q2

REPORT INFORMATION
  Report Type: Spontaneous
  Country: CN (occurrence: None)
  Receive Date: 20230626
  Receipt Date: 20230626
  Transmission Date: 20230722
  Serious: Yes (Hospitalization, Other)
  Sender: FDA-Public Use
  Company Number: CN-ROCHE-3372722

PATIENT
  Age: 45 Year
  Sex: Male

DRUGS (1)
  1. GAZYVA [Suspect]
     Active Substance: OBINUTUZUMAB
     Indication: Ankylosing spondylitis
     Route: 042
     Dates: start: 20230612, end: 20230612

REACTIONS (5)
  - Rash erythematous [Recovering/Resolving]
  - Pruritus [Recovering/Resolving]
  - Blood pressure increased [Unknown]
  - Palpitations [Recovering/Resolving]
  - Off label use [Unknown]

NARRATIVE: CASE EVENT DATE: 20230612
